APPROVED DRUG PRODUCT: CISPLATIN
Active Ingredient: CISPLATIN
Strength: 1MG/ML
Dosage Form/Route: INJECTABLE;INJECTION
Application: A091062 | Product #001
Applicant: PHARMOBEDIENT CONSULTING LLC
Approved: Apr 18, 2012 | RLD: No | RS: No | Type: DISCN